FAERS Safety Report 10071725 (Version 1)
Quarter: 2014Q2

REPORT INFORMATION
  Report Type: Spontaneous
  Country: PT (occurrence: PT)
  Receive Date: 20140411
  Receipt Date: 20140411
  Transmission Date: 20141212
  Serious: Yes (Other)
  Sender: FDA-Public Use
  Company Number: PT-ROCHE-1369216

PATIENT
  Sex: Female

DRUGS (6)
  1. HERCEPTIN [Suspect]
     Indication: INVASIVE DUCTAL BREAST CARCINOMA
     Route: 065
  2. CAPECITABINE [Suspect]
     Indication: INVASIVE DUCTAL BREAST CARCINOMA
     Route: 065
  3. ZOLADEX [Suspect]
     Indication: INVASIVE DUCTAL BREAST CARCINOMA
     Route: 065
  4. TAMOXIFEN [Suspect]
     Indication: INVASIVE DUCTAL BREAST CARCINOMA
     Route: 065
  5. LETROZOLE [Suspect]
     Indication: INVASIVE DUCTAL BREAST CARCINOMA
     Route: 065
  6. LAPATINIB [Suspect]
     Indication: INVASIVE DUCTAL BREAST CARCINOMA
     Route: 065

REACTIONS (9)
  - Carcinoembryonic antigen increased [Unknown]
  - Carbohydrate antigen 15-3 increased [Unknown]
  - Metastases to central nervous system [Unknown]
  - Asthenia [Unknown]
  - Gait disturbance [Unknown]
  - Coordination abnormal [Unknown]
  - Ataxia [Unknown]
  - Metastases to central nervous system [Unknown]
  - Disease progression [Unknown]
